FAERS Safety Report 22388879 (Version 6)
Quarter: 2024Q4

REPORT INFORMATION
  Report Type: Spontaneous
  Country: JP (occurrence: JP)
  Receive Date: 20230531
  Receipt Date: 20241102
  Transmission Date: 20250115
  Serious: Yes (Death, Other)
  Sender: UNITED THERAPEUTICS
  Company Number: JP-UNITED THERAPEUTICS-UNT-2021-022005

PATIENT
  Age: 10 Year
  Sex: Male

DRUGS (20)
  1. UNITUXIN [Suspect]
     Active Substance: DINUTUXIMAB
     Indication: Neuroblastoma recurrent
     Dosage: 17.5 MG/KG, CYCLICAL (CYCLE 1)
     Route: 041
     Dates: start: 20211025, end: 20211028
  2. UNITUXIN [Suspect]
     Active Substance: DINUTUXIMAB
     Dosage: 17.5 MG/KG, CYCLICAL (CYCLE 2)
     Route: 041
     Dates: start: 20211122, end: 20211125
  3. UNITUXIN [Suspect]
     Active Substance: DINUTUXIMAB
     Dosage: UNK, CYCLICAL (CYCLE 3)
     Route: 041
     Dates: start: 20211213, end: 20211216
  4. UNITUXIN [Suspect]
     Active Substance: DINUTUXIMAB
     Dosage: UNK, CYCLICAL (CYCLE 4)
     Route: 041
     Dates: start: 20220118, end: 20220121
  5. UNITUXIN [Suspect]
     Active Substance: DINUTUXIMAB
     Dosage: UNK, CYCLICAL (CYCLE 5)
     Route: 041
  6. UNITUXIN [Suspect]
     Active Substance: DINUTUXIMAB
     Dosage: UNK, CYCLICAL (CYCLE 6)
     Route: 041
  7. UNITUXIN [Suspect]
     Active Substance: DINUTUXIMAB
     Dosage: UNK, CYCLICAL (CYCLE 1) [SECOND POST-MARKETING ADMINISTRATION OF UNITUXIN]
     Route: 041
  8. UNITUXIN [Suspect]
     Active Substance: DINUTUXIMAB
     Dosage: UNK, CYCLICAL (CYCLE 7) [SECOND POST-MARKETING ADMINISTRATION OF UNITUXIN]
     Route: 041
  9. FILGRASTIM [Suspect]
     Active Substance: FILGRASTIM
     Indication: Neuroblastoma recurrent
     Dosage: UNK
     Dates: start: 20211022, end: 20211101
  10. FILGRASTIM [Suspect]
     Active Substance: FILGRASTIM
     Dosage: 2 ?G/KG (RESTARTED DOSE)
     Dates: start: 20211103, end: 20211106
  11. FILGRASTIM [Suspect]
     Active Substance: FILGRASTIM
     Dosage: UNK
     Dates: start: 20211210, end: 20211217
  12. FILGRASTIM [Suspect]
     Active Substance: FILGRASTIM
     Dosage: 2 ?G/KG (RESTARTED DOSE)
     Dates: start: 20211220, end: 20211223
  13. TECELEUKIN [Suspect]
     Active Substance: TECELEUKIN
     Indication: Neuroblastoma recurrent
     Dosage: UNK (CYCLE 2)
     Route: 041
     Dates: start: 20211115, end: 20211125
  14. TECELEUKIN [Suspect]
     Active Substance: TECELEUKIN
     Dosage: UNK
     Route: 041
     Dates: start: 20220111, end: 20220114
  15. TECELEUKIN [Suspect]
     Active Substance: TECELEUKIN
     Dosage: UNK
     Route: 041
     Dates: start: 20220118, end: 20220121
  16. ACETAMINOPHEN [Concomitant]
     Active Substance: ACETAMINOPHEN
     Indication: Product used for unknown indication
     Dosage: UNK
     Dates: start: 20220111, end: 20220114
  17. ACETAMINOPHEN [Concomitant]
     Active Substance: ACETAMINOPHEN
     Dosage: UNK
     Dates: start: 20220118, end: 20220121
  18. HYDROXYZINE HYDROCHLORIDE [Concomitant]
     Active Substance: HYDROXYZINE HYDROCHLORIDE
     Indication: Product used for unknown indication
     Dosage: UNK
     Dates: start: 20220111, end: 20220114
  19. HYDROXYZINE HYDROCHLORIDE [Concomitant]
     Active Substance: HYDROXYZINE HYDROCHLORIDE
     Dosage: UNK
     Dates: start: 20220118, end: 20220121
  20. MORPHINE [Concomitant]
     Active Substance: MORPHINE
     Indication: Product used for unknown indication
     Dosage: UNK
     Dates: start: 20220118, end: 20220120

REACTIONS (15)
  - Disease progression [Fatal]
  - Neuroblastoma recurrent [Unknown]
  - Pyrexia [Recovered/Resolved]
  - White blood cell count increased [Recovered/Resolved]
  - Pyrexia [Recovered/Resolved]
  - Pyrexia [Recovered/Resolved]
  - Eyelid oedema [Recovered/Resolved]
  - White blood cell count increased [Recovered/Resolved]
  - Pyrexia [Recovered/Resolved]
  - Vomiting [Recovered/Resolved]
  - Pyrexia [Recovered/Resolved]
  - Pain in extremity [Recovered/Resolved]
  - Peripheral swelling [Recovered/Resolved]
  - Weight increased [Recovered/Resolved]
  - Malaise [Recovered/Resolved]

NARRATIVE: CASE EVENT DATE: 20211026
